FAERS Safety Report 6805658-5 (Version None)
Quarter: 2010Q2

REPORT INFORMATION
  Report Type: 
  Country: None (occurrence: None)
  Receive Date: 20100628
  Receipt Date: 20080123
  Transmission Date: 20101027
  Serious: Yes (Other)
  Sender: FDA-Public Use
  Company Number: US-PFIZER INC-2007091513

PATIENT
  Age: 52 Year
  Sex: Female

DRUGS (8)
  1. GEODON [Suspect]
     Indication: DEPRESSION
     Dates: start: 20070601, end: 20071001
  2. GEODON [Suspect]
     Indication: PSYCHOTIC BEHAVIOUR
  3. LEXAPRO [Suspect]
  4. CELEBREX [Concomitant]
  5. SYNTHROID [Concomitant]
  6. ASPIRIN [Concomitant]
  7. LYRICA [Concomitant]
     Indication: PAIN
  8. OXYCONTIN [Concomitant]
     Indication: PAIN

REACTIONS (1)
  - LACUNAR INFARCTION [None]
